FAERS Safety Report 20347781 (Version 6)
Quarter: 2025Q2

REPORT INFORMATION
  Report Type: Spontaneous
  Country: US (occurrence: US)
  Receive Date: 20220118
  Receipt Date: 20250623
  Transmission Date: 20250716
  Serious: No
  Sender: PFIZER
  Company Number: US-PFIZER INC-202101410472

PATIENT
  Age: 68 Year
  Sex: Female

DRUGS (3)
  1. METHOTREXATE SODIUM [Suspect]
     Active Substance: METHOTREXATE SODIUM
     Indication: Arthralgia
     Dates: end: 2017
  2. METHOTREXATE SODIUM [Suspect]
     Active Substance: METHOTREXATE SODIUM
     Dates: start: 201801, end: 201806
  3. ENBREL [Concomitant]
     Active Substance: ETANERCEPT

REACTIONS (5)
  - Abdominal discomfort [Unknown]
  - Carpal tunnel syndrome [Unknown]
  - Alopecia [Unknown]
  - Gastrointestinal disorder [Unknown]
  - Off label use [Unknown]
